FAERS Safety Report 23044228 (Version 4)
Quarter: 2025Q3

REPORT INFORMATION
  Report Type: Report from Study
  Country: US (occurrence: US)
  Receive Date: 20231009
  Receipt Date: 20250718
  Transmission Date: 20251020
  Serious: Yes (Disabling, Other)
  Sender: TAKEDA
  Company Number: US-TAKEDA-2023TUS095977

PATIENT
  Sex: Female

DRUGS (1)
  1. VEDOLIZUMAB [Suspect]
     Active Substance: VEDOLIZUMAB
     Indication: Crohn^s disease

REACTIONS (6)
  - Disability [Unknown]
  - Chronic kidney disease [Unknown]
  - Hip fracture [Unknown]
  - Fall [Unknown]
  - Malaise [Unknown]
  - Ear infection [Unknown]
